FAERS Safety Report 14172453 (Version 1)
Quarter: 2017Q4

REPORT INFORMATION
  Report Type: Spontaneous
  Country: US (occurrence: US)
  Receive Date: 20171108
  Receipt Date: 20171108
  Transmission Date: 20180321
  Serious: Yes (Life-Threatening)
  Sender: FDA-Public Use
  Company Number: None

PATIENT
  Age: 56 Year
  Sex: Female
  Weight: 98.8 kg

DRUGS (1)
  1. OXALIPLATIN. [Suspect]
     Active Substance: OXALIPLATIN
     Indication: RECTAL CANCER RECURRENT
     Route: 042
     Dates: start: 20171001, end: 20171106

REACTIONS (4)
  - Erythema [None]
  - Unresponsive to stimuli [None]
  - Pulse absent [None]
  - Acute myocardial infarction [None]

NARRATIVE: CASE EVENT DATE: 20171106
